FAERS Safety Report 22630221 (Version 1)
Quarter: 2023Q2

REPORT INFORMATION
  Report Type: Spontaneous
  Country: BR (occurrence: BR)
  Receive Date: 20230622
  Receipt Date: 20230622
  Transmission Date: 20230722
  Serious: Yes (Death, Hospitalization, Other)
  Sender: FDA-Public Use
  Company Number: BR-TAKEDA-2023TUS060478

PATIENT
  Sex: Male
  Weight: 49 kg

DRUGS (4)
  1. MESALAMINE [Suspect]
     Active Substance: MESALAMINE
     Indication: Gastrointestinal disorder
     Dosage: UNK
     Route: 065
     Dates: start: 20230428, end: 20230428
  2. XARELTO [Concomitant]
     Active Substance: RIVAROXABAN
     Indication: Pulmonary vascular disorder
     Dosage: UNK
  3. ATORVASTATIN [Concomitant]
     Active Substance: ATORVASTATIN
     Indication: Blood cholesterol
     Dosage: UNK
  4. DUTAM [Concomitant]
     Indication: Prostate infection
     Dosage: UNK

REACTIONS (5)
  - Death [Fatal]
  - Abnormal faeces [Unknown]
  - Haemorrhage [Unknown]
  - Treatment failure [Unknown]
  - Off label use [Unknown]
